FAERS Safety Report 22353757 (Version 16)
Quarter: 2023Q4

REPORT INFORMATION
  Report Type: Report from Study
  Country: TR (occurrence: None)
  Receive Date: 20230523
  Receipt Date: 20231031
  Transmission Date: 20240110
  Serious: Yes (Hospitalization)
  Sender: FDA-Public Use
  Company Number: TR-ROCHE-3353099

PATIENT
  Age: 37 Year
  Sex: Female
  Weight: 88.5 kg

DRUGS (16)
  1. ATEZOLIZUMAB [Suspect]
     Active Substance: ATEZOLIZUMAB
     Indication: HER2 positive breast cancer
     Dosage: DOSE LAST STUDY DRUG ADMIN PRIOR AE AND SAE IS 1200 MG?START DATE OF MOST RECENT DOSE OF STUDY DRUG
     Route: 041
     Dates: start: 20230217
  2. ADO-TRASTUZUMAB EMTANSINE [Suspect]
     Active Substance: ADO-TRASTUZUMAB EMTANSINE
     Indication: HER2 positive breast cancer
     Dosage: DOSE LAST STUDY DRUG ADMIN PRIOR AE AND SAE IS 315 MG/KG?START DATE OF MOST RECENT DOSE OF STUDY DRU
     Route: 042
     Dates: start: 20230217
  3. EUTHYROX [Concomitant]
     Active Substance: LEVOTHYROXINE SODIUM
     Indication: Hypothyroidism
     Dates: start: 2013
  4. FLURBIPROFEN [Concomitant]
     Active Substance: FLURBIPROFEN
     Indication: Migraine
     Dates: start: 2008
  5. ACETAMINOPHEN [Concomitant]
     Active Substance: ACETAMINOPHEN
     Indication: Migraine
     Dates: start: 2008
  6. MAGNESIUM [Concomitant]
     Active Substance: MAGNESIUM
     Indication: Electrocardiogram QT prolonged
     Dates: start: 20230309
  7. OROFERON [Concomitant]
     Indication: Iron deficiency anaemia
     Dates: start: 20230407
  8. GRANEXA [Concomitant]
     Indication: Nausea
     Dates: start: 20230407, end: 20230409
  9. ONDANSETRON HYDROCHLORIDE [Concomitant]
     Active Substance: ONDANSETRON HYDROCHLORIDE
     Indication: Nausea
     Dates: start: 20230409, end: 20230409
  10. SUCRALFATE [Concomitant]
     Active Substance: SUCRALFATE
     Indication: Oesophagitis
     Dates: start: 20230509, end: 20230601
  11. MONODOKS [Concomitant]
     Dates: start: 20230602, end: 20230609
  12. BEPANTHOL [Concomitant]
     Indication: Dermatitis
     Dates: start: 20230525
  13. ASPIRIN [Concomitant]
     Active Substance: ASPIRIN
     Dates: start: 20230811
  14. LEUPROLIDE ACETATE [Concomitant]
     Active Substance: LEUPROLIDE ACETATE
     Dates: start: 20230925, end: 20230925
  15. LEUPROLIDE ACETATE [Concomitant]
     Active Substance: LEUPROLIDE ACETATE
     Dates: start: 20231024, end: 20231024
  16. NAZALNEM [Concomitant]
     Indication: Epistaxis
     Dates: start: 20231025

REACTIONS (3)
  - Electrocardiogram T wave abnormal [Not Recovered/Not Resolved]
  - Heavy menstrual bleeding [Recovered/Resolved]
  - Anaemia [Not Recovered/Not Resolved]

NARRATIVE: CASE EVENT DATE: 20230504
